FAERS Safety Report 9780593 (Version 3)
Quarter: 2014Q3

REPORT INFORMATION
  Report Type: Report from Study
  Country: US (occurrence: US)
  Receive Date: 20131224
  Receipt Date: 20140703
  Transmission Date: 20150326
  Serious: Yes (Death, Hospitalization)
  Sender: FDA-Public Use
  Company Number: US-ROCHE-1284914

PATIENT
  Age: 69 Year
  Sex: Male
  Weight: 62.6 kg

DRUGS (3)
  1. CARBOPLATIN. [Suspect]
     Active Substance: CARBOPLATIN
     Indication: HEAD AND NECK CANCER
     Dosage: TOTAL DOSE ADMINISTERED THIS COURSE- 660 MG
     Route: 042
     Dates: start: 20130730
  2. DOCETAXEL [Suspect]
     Active Substance: DOCETAXEL
     Indication: HEAD AND NECK CANCER
     Dosage: TOTAL DOSE ADMINISTERED THIS COURSE- 130 MG
     Route: 042
     Dates: start: 20130730
  3. BEVACIZUMAB [Suspect]
     Active Substance: BEVACIZUMAB
     Indication: HEAD AND NECK CANCER
     Dosage: TOTAL DOSE ADMINISTERED THIS COURSE- 915 MG
     Route: 042
     Dates: start: 20130730

REACTIONS (4)
  - Lung infection [Recovering/Resolving]
  - Neoplasm malignant [Fatal]
  - Febrile neutropenia [Recovering/Resolving]
  - Stomatitis [Recovering/Resolving]

NARRATIVE: CASE EVENT DATE: 20130808
